FAERS Safety Report 14692570 (Version 1)
Quarter: 2018Q1

REPORT INFORMATION
  Report Type: Spontaneous
  Country: GB (occurrence: GB)
  Receive Date: 20180329
  Receipt Date: 20180329
  Transmission Date: 20180509
  Serious: Yes (Disabling, Other)
  Sender: FDA-Public Use
  Company Number: GB-009507513-1803GBR009784

PATIENT
  Age: 73 Year
  Sex: Female
  Weight: 68 kg

DRUGS (4)
  1. DERMOVATE [Concomitant]
     Active Substance: CLOBETASOL
     Dosage: 0.05 %, USE SPARINGLY FOR A SHORT TIME ONLY
     Dates: start: 20180102
  2. LANSOPRAZOLE. [Concomitant]
     Active Substance: LANSOPRAZOLE
     Dosage: 15 MG, IN THE MORNING
     Dates: start: 20171215
  3. EZETIMIBE. [Suspect]
     Active Substance: EZETIMIBE
     Indication: GROIN PAIN
     Route: 048
  4. LEVOTHYROXINE SODIUM. [Concomitant]
     Active Substance: LEVOTHYROXINE SODIUM
     Dosage: 100 MICROGRAM, QD
     Dates: start: 20171215, end: 20180212

REACTIONS (3)
  - Depressed mood [Recovered/Resolved]
  - Aggression [Recovered/Resolved]
  - Fatigue [Recovered/Resolved]

NARRATIVE: CASE EVENT DATE: 20180214
